FAERS Safety Report 9908964 (Version 3)
Quarter: 2014Q2

REPORT INFORMATION
  Report Type: Spontaneous
  Country: US (occurrence: US)
  Receive Date: 20140219
  Receipt Date: 20140429
  Transmission Date: 20141212
  Serious: Yes (Hospitalization)
  Sender: FDA-Public Use
  Company Number: US-VERTEX PHARMACEUTICALS INC-2014-000816

PATIENT
  Age: 19 Year
  Sex: Male

DRUGS (2)
  1. KALYDECO [Suspect]
     Indication: CYSTIC FIBROSIS
     Dosage: UNK
     Dates: start: 201202, end: 2013
  2. TOBRAMYCIN [Suspect]

REACTIONS (3)
  - Catheter placement [Unknown]
  - Cough [Unknown]
  - Malaise [Unknown]
